FAERS Safety Report 10208517 (Version 1)
Quarter: 2014Q2

REPORT INFORMATION
  Report Type: Spontaneous
  Country: CN (occurrence: CN)
  Receive Date: 20140530
  Receipt Date: 20140530
  Transmission Date: 20141212
  Serious: Yes (Other)
  Sender: FDA-Public Use
  Company Number: CN-GLAXOSMITHKLINE-B0998138A

PATIENT
  Age: 45 Year
  Sex: Male
  Weight: 55 kg

DRUGS (1)
  1. HEPTODIN [Suspect]
     Indication: HEPATITIS B
     Dosage: 100MG PER DAY
     Route: 048
     Dates: start: 20130103, end: 20130419

REACTIONS (2)
  - Rash generalised [Recovered/Resolved]
  - Blister [Recovered/Resolved]
